FAERS Safety Report 5271860-X (Version None)
Quarter: 2007Q1

REPORT INFORMATION
  Report Type: 
  Country: None (occurrence: None)
  Receive Date: 20070321
  Receipt Date: 20070313
  Transmission Date: 20070707
  Serious: Yes (Other)
  Sender: FDA-Public Use
  Company Number: US-PFIZER INC-2007020257

PATIENT
  Sex: Female
  Weight: 90.7 kg

DRUGS (8)
  1. LYRICA [Suspect]
     Indication: DIABETIC NEUROPATHY
     Dates: start: 20070128, end: 20070312
  2. METFORMIN [Concomitant]
  3. LEVOTHYROXINE SODIUM [Concomitant]
  4. SYNTHROID [Concomitant]
  5. ATENOLOL [Concomitant]
  6. DIGOXIN [Concomitant]
  7. LASIX [Concomitant]
  8. KLOR-CON [Concomitant]

REACTIONS (2)
  - ACTIVITIES OF DAILY LIVING IMPAIRED [None]
  - SOMNOLENCE [None]
